FAERS Safety Report 24708515 (Version 1)
Quarter: 2024Q4

REPORT INFORMATION
  Report Type: Spontaneous
  Country: US (occurrence: US)
  Receive Date: 20241207
  Receipt Date: 20241207
  Transmission Date: 20250115
  Serious: No
  Sender: SANOFI AVENTIS
  Company Number: US-SA-2024SA360726

PATIENT
  Sex: Female
  Weight: 54.4 kg

DRUGS (16)
  1. DUPIXENT [Suspect]
     Active Substance: DUPILUMAB
     Indication: Nasal polyps
     Dosage: 300 MG, QOW
     Route: 058
  2. MINERALS\VITAMINS [Concomitant]
     Active Substance: MINERALS\VITAMINS
  3. CLARITIN [Concomitant]
     Active Substance: LORATADINE
  4. IMITREX [Concomitant]
     Active Substance: SUMATRIPTAN SUCCINATE
  5. Citracal + D3 [Concomitant]
  6. CINNAMON [Concomitant]
     Active Substance: CINNAMON
  7. BIOTIN [Concomitant]
     Active Substance: BIOTIN
  8. ACCOLATE [Concomitant]
     Active Substance: ZAFIRLUKAST
  9. PULMICORT TURBUHALER [Concomitant]
     Active Substance: BUDESONIDE
  10. VITAMIN C [Concomitant]
     Active Substance: ASCORBIC ACID
  11. CRESTOR [Concomitant]
     Active Substance: ROSUVASTATIN CALCIUM
  12. EPIPEN [Concomitant]
     Active Substance: EPINEPHRINE
  13. MINERALS\VITAMINS [Concomitant]
     Active Substance: MINERALS\VITAMINS
  14. SYMBICORT [Concomitant]
     Active Substance: BUDESONIDE\FORMOTEROL FUMARATE DIHYDRATE
  15. FLONASE ALLERGY RELIEF [Concomitant]
     Active Substance: FLUTICASONE PROPIONATE
  16. ALBUTEROL SULFATE [Concomitant]
     Active Substance: ALBUTEROL SULFATE

REACTIONS (5)
  - Influenza like illness [Unknown]
  - Drug hypersensitivity [Unknown]
  - Skin discolouration [Unknown]
  - Pruritus [Recovered/Resolved]
  - Rash [Unknown]
